FAERS Safety Report 8388676-8 (Version None)
Quarter: 2012Q2

REPORT INFORMATION
  Report Type: 
  Country: None (occurrence: None)
  Receive Date: 20120525
  Receipt Date: 20120524
  Transmission Date: 20120825
  Serious: Yes (Other)
  Sender: FDA-Public Use
  Company Number: CO-BIOMARINP-002589

PATIENT
  Age: 17 Year
  Sex: Female

DRUGS (2)
  1. VALPROIC ACID [Concomitant]
  2. NAGLAZYME [Suspect]
     Indication: MUCOPOLYSACCHARIDOSIS VI
     Route: 041
     Dates: start: 20100930

REACTIONS (3)
  - TRACHEOSTOMY MALFUNCTION [None]
  - CONVULSION [None]
  - HYPOXIA [None]
